FAERS Safety Report 20793755 (Version 1)
Quarter: 2022Q2

REPORT INFORMATION
  Report Type: Spontaneous
  Country: RO (occurrence: RO)
  Receive Date: 20220506
  Receipt Date: 20220506
  Transmission Date: 20220720
  Serious: Yes (Other)
  Sender: FDA-Public Use
  Company Number: RO-ABBVIE-22K-135-4379168-00

PATIENT
  Age: 39 Year
  Sex: Male

DRUGS (5)
  1. HUMIRA [Suspect]
     Active Substance: ADALIMUMAB
     Indication: Colitis ulcerative
     Route: 058
  2. HUMIRA [Suspect]
     Active Substance: ADALIMUMAB
     Indication: Ulcer haemorrhage
     Route: 058
     Dates: start: 201710, end: 201910
  3. MESALAZINE AKP [Concomitant]
     Indication: Product used for unknown indication
     Dates: start: 201202
  4. MESALAZINE AKP [Concomitant]
     Indication: Product used for unknown indication
     Dates: start: 201202
  5. MESALAMINE [Concomitant]
     Active Substance: MESALAMINE
     Indication: Product used for unknown indication

REACTIONS (12)
  - Large intestinal ulcer haemorrhage [Recovered/Resolved]
  - Large intestinal ulcer haemorrhage [Recovered/Resolved]
  - Pulmonary tuberculosis [Recovered/Resolved]
  - Bacterial test positive [Unknown]
  - Colitis [Recovered/Resolved]
  - Colitis [Recovered/Resolved]
  - Intestinal transit time increased [Recovered/Resolved]
  - Asthenia [Unknown]
  - Leukocytosis [Unknown]
  - Inflammation [Unknown]
  - Abdominal pain [Recovered/Resolved]
  - Diarrhoea [Recovered/Resolved]

NARRATIVE: CASE EVENT DATE: 20171001
